FAERS Safety Report 9286332 (Version 2)
Quarter: 2013Q2

REPORT INFORMATION
  Report Type: Spontaneous
  Country: US (occurrence: US)
  Receive Date: 20130513
  Receipt Date: 20130523
  Transmission Date: 20140414
  Serious: Yes (Disabling, Other)
  Sender: FDA-Public Use
  Company Number: US-TEVA-403618USA

PATIENT
  Sex: Female

DRUGS (1)
  1. NEFAZODONE [Suspect]
     Dosage: 400 MILLIGRAM DAILY;

REACTIONS (13)
  - Diabetes mellitus [Unknown]
  - Pharyngitis [Unknown]
  - Arthritis [Unknown]
  - Sjogren^s syndrome [Unknown]
  - Post-traumatic stress disorder [Unknown]
  - Bipolar disorder [Unknown]
  - Developmental hip dysplasia [Unknown]
  - Autoimmune thyroiditis [Unknown]
  - Polyglandular autoimmune syndrome type II [Unknown]
  - Viral infection [Unknown]
  - Pain [Unknown]
  - Cervical vertebral fracture [Unknown]
  - Spinal fracture [Unknown]
